FAERS Safety Report 8079870-4 (Version None)
Quarter: 2012Q1

REPORT INFORMATION
  Report Type: 
  Country: None (occurrence: None)
  Receive Date: 20120128
  Receipt Date: 20110831
  Transmission Date: 20120608
  Serious: No
  Sender: FDA-Public Use
  Company Number: US-ABBOTT-11P-163-0850810-00

PATIENT
  Age: 63 Year
  Sex: Female

DRUGS (9)
  1. TRIMETHOPRIM [Concomitant]
     Indication: INFECTION PROPHYLAXIS
  2. ZOLOFT [Concomitant]
     Indication: DEPRESSION
     Dosage: 100 MG ONCE A DAY
  3. ADDERALL 5 [Concomitant]
     Indication: POST-TRAUMATIC STRESS DISORDER
  4. IBUPROFEN [Concomitant]
     Indication: MYALGIA
  5. ADDERALL 5 [Concomitant]
     Indication: ATTENTION DEFICIT/HYPERACTIVITY DISORDER
  6. LISINOPRIL [Concomitant]
     Indication: HYPERTENSION
  7. HUMIRA [Suspect]
     Indication: PSORIATIC ARTHROPATHY
     Dates: start: 20110601
  8. OXAZEPAM [Concomitant]
     Indication: INSOMNIA
  9. ACYCLOVIR [Concomitant]
     Indication: STOMATITIS

REACTIONS (3)
  - ACCIDENTAL EXPOSURE [None]
  - DEVICE MALFUNCTION [None]
  - DRUG DOSE OMISSION [None]
